FAERS Safety Report 9256804 (Version 2)
Quarter: 2013Q2

REPORT INFORMATION
  Report Type: Spontaneous
  Country: JP (occurrence: JP)
  Receive Date: 20130426
  Receipt Date: 20130426
  Transmission Date: 20140414
  Serious: Yes (Life-Threatening, Hospitalization)
  Sender: FDA-Public Use
  Company Number: JP-PFIZER INC-2010140386

PATIENT
  Age: 31 Year
  Sex: Male

DRUGS (3)
  1. SELARA [Suspect]
     Indication: ESSENTIAL HYPERTENSION
     Dosage: 50 MG, 1X/DAY
     Route: 048
     Dates: start: 20100902, end: 20100907
  2. PREMINENT TABLETS [Interacting]
     Indication: ESSENTIAL HYPERTENSION
     Dosage: 1 DF, UNK
     Route: 048
     Dates: start: 201004, end: 20100907
  3. DOXAZOSIN MESILATE [Concomitant]
     Indication: ESSENTIAL HYPERTENSION
     Dosage: 1 MG, UNK

REACTIONS (16)
  - Potentiating drug interaction [Recovered/Resolved]
  - Hyponatraemia [Recovered/Resolved]
  - Heat stroke [Recovered/Resolved]
  - Altered state of consciousness [Recovered/Resolved]
  - Polydipsia [None]
  - Dehydration [None]
  - Coma [None]
  - Convulsion [None]
  - Blood pressure diastolic decreased [None]
  - Heart rate increased [None]
  - Respiratory rate increased [None]
  - Systemic inflammatory response syndrome [None]
  - Rhabdomyolysis [None]
  - Renal failure [None]
  - Hypercoagulation [None]
  - Body temperature increased [None]
